FAERS Safety Report 8437804-4 (Version None)
Quarter: 2012Q2

REPORT INFORMATION
  Report Type: 
  Country: None (occurrence: None)
  Receive Date: 20120614
  Receipt Date: 20120511
  Transmission Date: 20120825
  Serious: No
  Sender: FDA-Public Use
  Company Number: US-AMGEN-USASP2012030132

PATIENT
  Sex: Female

DRUGS (2)
  1. AMITRIPTYLINE HCL [Concomitant]
     Dosage: 1 MG, QD
  2. PROLIA [Suspect]
     Indication: OSTEOPOROSIS POSTMENOPAUSAL
     Dosage: UNK UNK, Q6MO
     Dates: start: 20101001

REACTIONS (1)
  - HAIR DISORDER [None]
